FAERS Safety Report 21853004 (Version 3)
Quarter: 2024Q4

REPORT INFORMATION
  Report Type: Report from Study
  Country: US (occurrence: US)
  Receive Date: 20230112
  Receipt Date: 20241127
  Transmission Date: 20250115
  Serious: No
  Sender: NOVARTIS
  Company Number: US-002147023-NVSC2023US006365

PATIENT
  Sex: Male

DRUGS (2)
  1. ENTRESTO [Suspect]
     Active Substance: SACUBITRIL\VALSARTAN
     Indication: Cardiac failure congestive
     Dosage: UNK, TWICE A DAY
     Route: 048
     Dates: start: 20180423
  2. ENTRESTO [Suspect]
     Active Substance: SACUBITRIL\VALSARTAN
     Dosage: UNK, TWICE A DAY
     Route: 048

REACTIONS (4)
  - Sinus congestion [Unknown]
  - Myalgia [Unknown]
  - Cough [Unknown]
  - Disorientation [Unknown]
